FAERS Safety Report 14418636 (Version 1)
Quarter: 2018Q1

REPORT INFORMATION
  Report Type: Spontaneous
  Country: US (occurrence: US)
  Receive Date: 20180122
  Receipt Date: 20180122
  Transmission Date: 20180509
  Serious: No
  Sender: FDA-Public Use
  Company Number: US-TEVA-735582ACC

PATIENT
  Sex: Female

DRUGS (1)
  1. OXYTOCIN. [Suspect]
     Active Substance: OXYTOCIN
     Route: 065

REACTIONS (3)
  - Drug intolerance [Unknown]
  - Pyrexia [Unknown]
  - Drug hypersensitivity [Unknown]
